FAERS Safety Report 16778242 (Version 4)
Quarter: 2023Q4

REPORT INFORMATION
  Report Type: Spontaneous
  Country: BE (occurrence: BE)
  Receive Date: 20190905
  Receipt Date: 20231026
  Transmission Date: 20240110
  Serious: Yes (Hospitalization)
  Sender: FDA-Public Use
  Company Number: None

PATIENT
  Age: 76 Year
  Sex: Female

DRUGS (23)
  1. DONEPEZIL [Suspect]
     Active Substance: DONEPEZIL
     Indication: Dementia Alzheimer^s type
     Dosage: 5 MILLIGRAM, ONCE A DAY
     Route: 048
     Dates: start: 20170123, end: 20170825
  2. MAGNESIUM [Suspect]
     Active Substance: MAGNESIUM
     Indication: Supplementation therapy
     Dosage: 450 MILLIGRAM, ONCE A DAY
     Route: 048
     Dates: end: 20170825
  3. TICAGRELOR [Suspect]
     Active Substance: TICAGRELOR
     Indication: Cardiovascular event prophylaxis
     Dosage: 90 MILLIGRAM, TWO TIMES A DAY
     Route: 048
     Dates: start: 20141124, end: 20141208
  4. TICAGRELOR [Suspect]
     Active Substance: TICAGRELOR
     Dosage: 60 MILLIGRAM
     Route: 048
     Dates: start: 20141216, end: 20141218
  5. STREPTOCOCCUS FAECALIS [Concomitant]
     Active Substance: STREPTOCOCCUS FAECALIS
     Indication: Vitamin supplementation
     Dosage: 1 DOSAGE FORM, ONCE A DAY
     Route: 048
  6. CO BISOPROLOL EG [Concomitant]
     Indication: Hypertension
     Dosage: UNK
     Route: 048
  7. CITALOPRAM [Concomitant]
     Active Substance: CITALOPRAM HYDROBROMIDE
     Indication: Sleep disorder
     Dosage: 20 MILLIGRAM, ONCE A DAY
     Route: 048
  8. COVERAM [Concomitant]
     Active Substance: AMLODIPINE\PERINDOPRIL
     Indication: Cardiac failure
     Dosage: UNK
     Route: 048
  9. MOLSIDOMINE [Concomitant]
     Active Substance: MOLSIDOMINE
     Indication: Coronary artery disease
     Dosage: 16 MILLIGRAM, ONCE A DAY
     Route: 048
  10. GLYBURIDE [Concomitant]
     Active Substance: GLYBURIDE
     Indication: Diabetes mellitus
     Dosage: 5 MILLIGRAM, ONCE A DAY
     Route: 048
  11. FLUTICASONE PROPIONATE [Concomitant]
     Active Substance: FLUTICASONE PROPIONATE
     Indication: Rhinitis
     Dosage: 50 MICROGRAM, ONCE A DAY
     Route: 045
  12. JANUVIA [Concomitant]
     Active Substance: SITAGLIPTIN PHOSPHATE
     Indication: Diabetes mellitus
     Dosage: 100 MILLIGRAM, ONCE A DAY
     Route: 048
  13. LORMETAZEPAM [Concomitant]
     Active Substance: LORMETAZEPAM
     Indication: Sleep disorder
     Dosage: 2 MILLIGRAM, ONCE A DAY
     Route: 048
  14. METFORMIN HYDROCHLORIDE [Concomitant]
     Active Substance: METFORMIN HYDROCHLORIDE
     Indication: Diabetes mellitus
     Dosage: 250 MILLIGRAM, ONCE A DAY
     Route: 048
  15. PLAVIX [Concomitant]
     Active Substance: CLOPIDOGREL BISULFATE
     Indication: Thrombosis
     Dosage: 75 MILLIGRAM, ONCE A DAY
     Route: 048
     Dates: start: 20160430
  16. PLAVIX [Concomitant]
     Active Substance: CLOPIDOGREL BISULFATE
     Indication: Thrombosis prophylaxis
  17. PRADAXA [Concomitant]
     Active Substance: DABIGATRAN ETEXILATE MESYLATE
     Indication: Pulmonary embolism
     Dosage: 300 MILLIGRAM, ONCE A DAY
     Route: 048
     Dates: start: 20170623
  18. PREDNISOLONE [Concomitant]
     Active Substance: PREDNISOLONE
     Indication: Rheumatoid arthritis
     Dosage: 14 MILLIGRAM, ONCE A DAY
     Route: 048
  19. Staurodorm [Concomitant]
     Indication: Sleep disorder
     Dosage: 675 MILLIGRAM, ONCE A DAY
     Route: 045
  20. SIMVASTATIN [Concomitant]
     Active Substance: SIMVASTATIN
     Indication: Hyperlipidaemia
     Dosage: 40 MILLIGRAM, ONCE A DAY
     Route: 048
  21. TEVETEN [Concomitant]
     Active Substance: EPROSARTAN MESYLATE
     Indication: Hypertension
     Dosage: 600 MILLIGRAM, ONCE A DAY
     Route: 048
  22. CYANOCOBALAMIN\FOLIC ACID\PYRIDOXINE HYDROCHLORIDE [Concomitant]
     Active Substance: CYANOCOBALAMIN\FOLIC ACID\PYRIDOXINE HYDROCHLORIDE
     Indication: Multi-vitamin deficiency
     Dosage: 1 DOSAGE FORM, ONCE A DAY
     Route: 048
  23. CLOPIDOGREL BISULFATE [Concomitant]
     Active Substance: CLOPIDOGREL BISULFATE
     Indication: Thrombosis prophylaxis
     Dosage: 75 MILLIGRAM, ONCE A DAY
     Route: 065
     Dates: start: 20160430

REACTIONS (1)
  - Haemorrhoidal haemorrhage [Recovered/Resolved]

NARRATIVE: CASE EVENT DATE: 20170825
